FAERS Safety Report 24297569 (Version 2)
Quarter: 2024Q3

REPORT INFORMATION
  Report Type: Spontaneous
  Country: TR (occurrence: TR)
  Receive Date: 20240909
  Receipt Date: 20240919
  Transmission Date: 20241017
  Serious: Yes (Other)
  Sender: BRISTOL MYERS SQUIBB
  Company Number: TR-BRISTOL-MYERS SQUIBB COMPANY-2024-141234

PATIENT
  Age: 56 Year
  Sex: Male

DRUGS (2)
  1. NIVOLUMAB [Suspect]
     Active Substance: NIVOLUMAB
     Indication: Clear cell renal cell carcinoma
  2. CABOZANTINIB [Suspect]
     Active Substance: CABOZANTINIB
     Indication: Clear cell renal cell carcinoma

REACTIONS (1)
  - Vanishing bile duct syndrome [Unknown]
